FAERS Safety Report 11405805 (Version 3)
Quarter: 2016Q4

REPORT INFORMATION
  Report Type: Report from Study
  Country: US (occurrence: US)
  Receive Date: 20150821
  Receipt Date: 20161024
  Transmission Date: 20170206
  Serious: No
  Sender: FDA-Public Use
  Company Number: PHHY2015US070910

PATIENT
  Age: 40 Year
  Sex: Male

DRUGS (1)
  1. GILENYA [Suspect]
     Active Substance: FINGOLIMOD HYDROCHLORIDE
     Indication: MULTIPLE SCLEROSIS
     Dosage: UNK, QD
     Route: 048

REACTIONS (5)
  - Hepatic enzyme increased [Recovered/Resolved]
  - Blood alkaline phosphatase increased [Unknown]
  - Nausea [Recovered/Resolved]
  - Fatigue [Recovered/Resolved]
  - Decreased appetite [Recovered/Resolved]

NARRATIVE: CASE EVENT DATE: 20150401
